FAERS Safety Report 6634715-1 (Version None)
Quarter: 2010Q1

REPORT INFORMATION
  Report Type: 
  Country: None (occurrence: None)
  Receive Date: 20100315
  Receipt Date: 20100305
  Transmission Date: 20100710
  Serious: Yes (Hospitalization)
  Sender: FDA-Public Use
  Company Number: US-EISAI INC.-E7272-00048-SPO-US

PATIENT
  Age: 51 Year
  Sex: Male
  Weight: 93 kg

DRUGS (8)
  1. ONTAK [Suspect]
     Route: 041
     Dates: start: 20100126
  2. TARGRETIN [Concomitant]
     Route: 048
  3. ASPIRIN [Concomitant]
     Route: 048
  4. CRESTOR [Concomitant]
     Route: 048
  5. NEXIUM [Concomitant]
     Route: 048
  6. NEURONTIN [Concomitant]
     Route: 048
  7. AMBIEN [Concomitant]
     Route: 048
  8. HYDROXYZINE [Concomitant]

REACTIONS (1)
  - COLITIS [None]
